FAERS Safety Report 4535101-0 (Version None)
Quarter: 2004Q4

REPORT INFORMATION
  Report Type: 
  Country: None (occurrence: None)
  Receive Date: 20041214
  Receipt Date: 20040827
  Transmission Date: 20050328
  Serious: No
  Sender: FDA-Public Use
  Company Number: 2004227932US

PATIENT
  Sex: Female
  Weight: 63.5 kg

DRUGS (6)
  1. BEXTRA [Suspect]
     Indication: ARTHRITIS
     Dosage: ORAL
     Route: 048
     Dates: start: 20040415, end: 20040601
  2. HYZAAR [Suspect]
     Indication: HYPERTENSION
  3. DETROL LA [Concomitant]
  4. MULTIVITAMIN [Concomitant]
  5. MINERALS NOS [Concomitant]
  6. TIAZAC [Concomitant]

REACTIONS (4)
  - BLOOD CREATININE INCREASED [None]
  - BLOOD PRESSURE INCREASED [None]
  - DRUG INTERACTION [None]
  - PAIN [None]
